FAERS Safety Report 6535486-X (Version None)
Quarter: 2009Q4

REPORT INFORMATION
  Report Type: 
  Country: None (occurrence: None)
  Receive Date: 20091228
  Receipt Date: 20090217
  Transmission Date: 20100525
  Serious: Yes (Other)
  Sender: FDA-Public Use
  Company Number: US-002503

PATIENT
  Sex: Female

DRUGS (2)
  1. MULTIHANCE [Suspect]
     Indication: ABDOMINAL PAIN
     Dosage: 20ML INTRAVENOUS
     Route: 042
     Dates: start: 20090217, end: 20090217
  2. MULTIHANCE [Suspect]
     Indication: NUCLEAR MAGNETIC RESONANCE IMAGING
     Dosage: 20ML INTRAVENOUS
     Route: 042
     Dates: start: 20090217, end: 20090217

REACTIONS (1)
  - HYPERSENSITIVITY [None]
